FAERS Safety Report 4434832-0 (Version None)
Quarter: 2004Q3

REPORT INFORMATION
  Report Type: 
  Country: None (occurrence: None)
  Receive Date: 20040827
  Receipt Date: 20040816
  Transmission Date: 20050211
  Serious: Yes (Other)
  Sender: FDA-Public Use
  Company Number: BE-BRISTOL-MYERS SQUIBB COMPANY-12684056

PATIENT
  Sex: Female

DRUGS (2)
  1. ENDOXAN [Suspect]
     Indication: BREAST CANCER
  2. ADRIAMYCIN PFS [Suspect]
     Indication: BREAST CANCER

REACTIONS (2)
  - HIDRADENITIS [None]
  - NEUTROPENIA [None]
